FAERS Safety Report 7528580-8 (Version None)
Quarter: 2011Q2

REPORT INFORMATION
  Report Type: 
  Country: None (occurrence: None)
  Receive Date: 20110607
  Receipt Date: 20040525
  Transmission Date: 20111010
  Serious: Yes (Death)
  Sender: FDA-Public Use
  Company Number: PHNR2004AU00939

PATIENT
  Sex: Male

DRUGS (2)
  1. IMIPRAMINE [Concomitant]
     Dosage: 25 MG, QD
  2. CLOZARIL [Suspect]
     Indication: SCHIZOPHRENIA
     Dosage: 12.5 - 450 MG/QD
     Dates: start: 20011107

REACTIONS (9)
  - DIZZINESS [None]
  - NAUSEA [None]
  - CHEST PAIN [None]
  - DECREASED APPETITE [None]
  - MYOCARDIAL INFARCTION [None]
  - BLOOD ALKALINE PHOSPHATASE INCREASED [None]
  - CIRCULATORY COLLAPSE [None]
  - LOSS OF CONSCIOUSNESS [None]
  - ANAEMIA [None]
